FAERS Safety Report 5790079-7 (Version None)
Quarter: 2008Q2

REPORT INFORMATION
  Report Type: 
  Country: None (occurrence: None)
  Receive Date: 20080626
  Receipt Date: 20080502
  Transmission Date: 20081010
  Serious: No
  Sender: FDA-Public Use
  Company Number: A0672055A

PATIENT
  Age: 50 Year

DRUGS (1)
  1. ALLI [Suspect]
     Route: 048

REACTIONS (16)
  - DERMATITIS CONTACT [None]
  - DISCOMFORT [None]
  - DRUG INEFFECTIVE [None]
  - FATIGUE [None]
  - FEELING ABNORMAL [None]
  - GASTROINTESTINAL DISORDER [None]
  - HUNGER [None]
  - MALAISE [None]
  - MIGRAINE [None]
  - POOR QUALITY SLEEP [None]
  - PRURITUS [None]
  - RASH [None]
  - RECTAL DISCHARGE [None]
  - SOMNOLENCE [None]
  - TENSION HEADACHE [None]
  - THERAPEUTIC RESPONSE UNEXPECTED [None]
